FAERS Safety Report 9439048 (Version 1)
Quarter: 2013Q3

REPORT INFORMATION
  Report Type: Spontaneous
  Country: US (occurrence: US)
  Receive Date: 20130802
  Receipt Date: 20130802
  Transmission Date: 20140515
  Serious: Yes (Hospitalization, Other)
  Sender: FDA-Public Use
  Company Number: US-ABBOTT-13P-163-1125714-00

PATIENT
  Age: 58 Year
  Sex: Female
  Weight: 77.18 kg

DRUGS (5)
  1. SYNTHROID [Suspect]
     Indication: THYROID DISORDER
     Dosage: 112 MCG DAILY
  2. XANAX [Suspect]
     Indication: PANIC DISORDER WITH AGORAPHOBIA
     Route: 048
  3. ALPRAZOLAM [Suspect]
     Indication: PANIC DISORDER WITH AGORAPHOBIA
  4. BENICAR [Suspect]
     Indication: HYPERTENSION
     Dosage: 20MG DAILY
  5. MORPHINE [Suspect]
     Indication: PRODUCT USED FOR UNKNOWN INDICATION
     Dates: start: 201301, end: 201301

REACTIONS (12)
  - Schwannoma [Unknown]
  - Peripheral nervous system neoplasm [Unknown]
  - Drug ineffective [Unknown]
  - Somnolence [Unknown]
  - Psychomotor hyperactivity [Unknown]
  - Product quality issue [Unknown]
  - Rash [Unknown]
  - Drug withdrawal syndrome [Unknown]
  - Panic attack [Unknown]
  - Respiratory failure [Unknown]
  - Dyspnoea [Unknown]
  - Poor quality drug administered [Unknown]
